FAERS Safety Report 5221897-1 (Version None)
Quarter: 2007Q1

REPORT INFORMATION
  Report Type: 
  Country: None (occurrence: None)
  Receive Date: 20070126
  Receipt Date: 20070126
  Transmission Date: 20070707
  Serious: Yes (Hospitalization)
  Sender: FDA-Public Use
  Company Number: None

PATIENT
  Age: 62 Year
  Sex: Female
  Weight: 104.3273 kg

DRUGS (2)
  1. CUPHER STENT [Suspect]
     Dosage: N/A - DOES NOT FIT PROBLEM
  2. PLAVIX [Concomitant]

REACTIONS (2)
  - SCIATICA [None]
  - TRANSIENT ISCHAEMIC ATTACK [None]
